FAERS Safety Report 8444991-0 (Version None)
Quarter: 2012Q2

REPORT INFORMATION
  Report Type: 
  Country: None (occurrence: None)
  Receive Date: 20120618
  Receipt Date: 20120605
  Transmission Date: 20120825
  Serious: Yes (Hospitalization, Disabling, Other)
  Sender: FDA-Public Use
  Company Number: JP-ROCHE-1029849

PATIENT
  Sex: Male
  Weight: 60 kg

DRUGS (2)
  1. OXALIPLATIN [Concomitant]
     Indication: LARGE INTESTINE CARCINOMA
     Dosage: DOSAGE IS UNCERTAIN.
     Route: 041
  2. XELODA [Suspect]
     Indication: LARGE INTESTINE CARCINOMA
     Dosage: DOSAGE IS UNCERTAIN.
     Route: 048

REACTIONS (4)
  - MULTIPLE SCLEROSIS [None]
  - QUADRIPLEGIA [None]
  - BLADDER DISORDER [None]
  - ANORECTAL DISORDER [None]
